FAERS Safety Report 18042535 (Version 1)
Quarter: 2020Q3

REPORT INFORMATION
  Report Type: Spontaneous
  Country: IN (occurrence: IN)
  Receive Date: 20200720
  Receipt Date: 20200720
  Transmission Date: 20201103
  Serious: Yes (Death, Other)
  Sender: FDA-Public Use
  Company Number: IN-AMGEN-INDSP2020113611

PATIENT

DRUGS (2)
  1. CARFILZOMIB [Suspect]
     Active Substance: CARFILZOMIB
     Indication: PLASMA CELL MYELOMA
     Dosage: UNK
     Route: 065
     Dates: start: 201811, end: 201904
  2. DEXAMETHASONE. [Concomitant]
     Active Substance: DEXAMETHASONE
     Indication: PLASMA CELL MYELOMA
     Dosage: UNK
     Dates: start: 201811, end: 201904

REACTIONS (11)
  - Vomiting [Unknown]
  - Abdominal discomfort [Unknown]
  - Therapy partial responder [Unknown]
  - Anaemia [Unknown]
  - Lower respiratory tract infection [Unknown]
  - Gingival swelling [Unknown]
  - Cytopenia [Unknown]
  - Alopecia [Unknown]
  - Death [Fatal]
  - Headache [Unknown]
  - Cough [Unknown]
